FAERS Safety Report 13205013 (Version 2)
Quarter: 2017Q1

REPORT INFORMATION
  Report Type: Spontaneous
  Country: JP (occurrence: JP)
  Receive Date: 20170208
  Receipt Date: 20170222
  Transmission Date: 20170428
  Serious: Yes (Death, Hospitalization)
  Sender: FDA-Public Use
  Company Number: JP-SA-2017SA019503

PATIENT
  Age: 63 Year
  Sex: Male

DRUGS (1)
  1. JEVTANA [Suspect]
     Active Substance: CABAZITAXEL
     Indication: PROSTATE CANCER
     Route: 042
     Dates: start: 20170119, end: 20170119

REACTIONS (3)
  - Neutrophil count decreased [Recovered/Resolved]
  - Disseminated intravascular coagulation [Fatal]
  - Septic shock [Fatal]

NARRATIVE: CASE EVENT DATE: 20170123
